FAERS Safety Report 4305536-X (Version None)
Quarter: 2004Q1

REPORT INFORMATION
  Report Type: 
  Country: None (occurrence: None)
  Receive Date: 20040226
  Receipt Date: 20031117
  Transmission Date: 20041129
  Serious: No
  Sender: FDA-Public Use
  Company Number: US-BRISTOL-MYERS SQUIBB COMPANY-12437810

PATIENT
  Age: 12 Year

DRUGS (4)
  1. ABILIFY [Suspect]
  2. TOPAMAX [Concomitant]
  3. ADDERALL [Concomitant]
  4. DESYREL [Concomitant]

REACTIONS (1)
  - SEDATION [None]
